FAERS Safety Report 8233725-0 (Version None)
Quarter: 2012Q1

REPORT INFORMATION
  Report Type: 
  Country: None (occurrence: None)
  Receive Date: 20120326
  Receipt Date: 20120312
  Transmission Date: 20120608
  Serious: Yes (Hospitalization)
  Sender: FDA-Public Use
  Company Number: TR-MYLANLABS-2012S1005763

PATIENT
  Age: 20 Year
  Sex: Male

DRUGS (4)
  1. CITALOPRAM HYDROBROMIDE [Suspect]
     Dosage: 20 MG/DAY
     Route: 065
  2. CITALOPRAM HYDROBROMIDE [Suspect]
     Dosage: 20 MG/DAY
     Route: 065
  3. CITALOPRAM HYDROBROMIDE [Suspect]
     Indication: ANXIETY DISORDER
     Dosage: 20 (400MG) CITALOPRAM
     Route: 065
  4. CITALOPRAM HYDROBROMIDE [Suspect]
     Indication: SUICIDE ATTEMPT
     Dosage: 20 (400MG) CITALOPRAM
     Route: 065

REACTIONS (2)
  - SUICIDE ATTEMPT [None]
  - ARRHYTHMIA SUPRAVENTRICULAR [None]
